FAERS Safety Report 17291987 (Version 1)
Quarter: 2020Q1

REPORT INFORMATION
  Report Type: Spontaneous
  Country: CN (occurrence: CN)
  Receive Date: 20200121
  Receipt Date: 20200121
  Transmission Date: 20200409
  Serious: Yes (Other)
  Sender: FDA-Public Use
  Company Number: CN-BAYER-2019-218621

PATIENT
  Age: 67 Year
  Sex: Male
  Weight: 79 kg

DRUGS (1)
  1. IOPROMIDE. [Suspect]
     Active Substance: IOPROMIDE
     Dosage: 1 ML, ONCE
     Route: 058
     Dates: start: 20191124, end: 20191124

REACTIONS (8)
  - Dyspnoea [Recovering/Resolving]
  - Contrast media reaction [Recovering/Resolving]
  - Erythema [Recovering/Resolving]
  - Nausea [Recovering/Resolving]
  - Pruritus [Recovering/Resolving]
  - Palpitations [Recovering/Resolving]
  - Product prescribing issue [None]
  - Dizziness [Recovering/Resolving]

NARRATIVE: CASE EVENT DATE: 20191124
